FAERS Safety Report 8592884-0 (Version None)
Quarter: 2012Q3

REPORT INFORMATION
  Report Type: 
  Country: None (occurrence: None)
  Receive Date: 20120814
  Receipt Date: 20120806
  Transmission Date: 20120928
  Serious: Yes (Other)
  Sender: FDA-Public Use
  Company Number: US-ABBOTT-12P-163-0966088-00

PATIENT
  Sex: Female
  Weight: 59.474 kg

DRUGS (5)
  1. HUMIRA [Suspect]
     Indication: PSORIATIC ARTHROPATHY
     Dates: end: 20111101
  2. VITAMIN TAB [Concomitant]
     Indication: PRODUCT USED FOR UNKNOWN INDICATION
  3. ATIVAN [Concomitant]
     Indication: ANXIETY
     Dates: start: 20120101
  4. DOVENEX CREAM [Concomitant]
     Indication: PSORIASIS
  5. HUMIRA [Suspect]
     Indication: PSORIASIS
     Dates: start: 20090101, end: 20110801

REACTIONS (13)
  - PSORIASIS [None]
  - ASTIGMATISM [None]
  - WOUND INFECTION STAPHYLOCOCCAL [None]
  - OSTEOARTHRITIS [None]
  - RASH MACULAR [None]
  - WOUND SECRETION [None]
  - PAIN IN EXTREMITY [None]
  - HEADACHE [None]
  - FOOT DEFORMITY [None]
  - ANXIETY [None]
  - PHOTOPHOBIA [None]
  - DRY EYE [None]
  - VISUAL IMPAIRMENT [None]
